FAERS Safety Report 4474949-8 (Version None)
Quarter: 2004Q3

REPORT INFORMATION
  Report Type: 
  Country: None (occurrence: None)
  Receive Date: 20040923
  Receipt Date: 20040701
  Transmission Date: 20050211
  Serious: No
  Sender: FDA-Public Use
  Company Number: USA040771696

PATIENT
  Age: 79 Year
  Sex: Female

DRUGS (13)
  1. FORTEO [Suspect]
     Indication: OSTEOPOROSIS
     Dates: start: 20040604
  2. METHADOSE (METHADONE HYDROCHLORIDE) [Concomitant]
  3. SYNTHROID [Concomitant]
  4. ATROVENT [Concomitant]
  5. ALLEGRA [Concomitant]
  6. LESCOL [Concomitant]
  7. PRINIVIL [Concomitant]
  8. METOPROLOL [Concomitant]
  9. LANOXIN [Concomitant]
  10. NITROGLYCERIN [Concomitant]
  11. COUMADIN [Concomitant]
  12. CALCIUM [Concomitant]
  13. MULTI-VITAMIN [Concomitant]

REACTIONS (5)
  - CONSTIPATION [None]
  - DRUG INTERACTION [None]
  - INTERNATIONAL NORMALISED RATIO DECREASED [None]
  - NAUSEA [None]
  - VOMITING [None]
